FAERS Safety Report 8782912 (Version 1)
Quarter: 2012Q4

REPORT INFORMATION
  Report Type: 
  Country: GB (occurrence: GB)
  Receive Date: 20120913
  Receipt Date: 20120913
  Transmission Date: 20130627
  Serious: Yes (Other)
  Sender: FDA-Public Use
  Company Number: PHHY2012GB079074

PATIENT
  Age: 83 Year
  Sex: Female

DRUGS (15)
  1. AMOXICILLIN\CLAVULANATE POTASSIUM [Suspect]
     Indication: URINARY TRACT INFECTION
     Dosage: 1.2 g, TID
     Route: 042
     Dates: start: 20120818, end: 20120819
  2. AMOXICILLIN\CLAVULANATE POTASSIUM [Suspect]
     Dosage: 625 mg, TID
     Route: 048
     Dates: start: 20120820, end: 20120821
  3. OMEPRAZOLE [Suspect]
     Dosage: 20 mg, QD
     Route: 048
     Dates: end: 20120821
  4. PHENYTOIN [Suspect]
     Indication: GRAND MAL CONVULSION
     Dosage: 750 mg, QD
     Route: 042
     Dates: start: 20120818, end: 20120818
  5. EPILIM [Suspect]
     Indication: GRAND MAL CONVULSION
     Dosage: 200 mg, BID
     Route: 048
     Dates: start: 20120819, end: 20120821
  6. GENTICIN [Suspect]
     Indication: URINARY TRACT INFECTION
     Dosage: 240 mg, QD
     Route: 042
     Dates: start: 20120818, end: 20120818
  7. BUTRANS [Concomitant]
     Dosage: 10 ug, UNK
     Route: 062
     Dates: end: 20120819
  8. BUTRANS [Concomitant]
     Dosage: 20 ug, UNK
     Route: 062
     Dates: start: 20120819
  9. CALCEOS [Concomitant]
     Dosage: 1 DF, BID
  10. EBIXA [Concomitant]
     Indication: VASCULAR DEMENTIA
     Dosage: 20 mg, QD
     Route: 048
  11. MOVICOL [Concomitant]
     Dosage: 13 g, QD
     Dates: end: 20120808
  12. PARACETAMOL [Concomitant]
     Dosage: 1 g, UNK
     Route: 048
  13. PROTELOS [Concomitant]
     Dosage: 2 g, QD
     Route: 048
     Dates: end: 20120818
  14. SENNA [Concomitant]
     Dosage: 7.5 mg, QD
     Dates: end: 20120818
  15. TRIMETHOPRIM [Concomitant]
     Indication: URINARY TRACT INFECTION
     Dosage: 200 mg, BID
     Route: 048
     Dates: end: 20120823

REACTIONS (1)
  - Blood creatine phosphokinase increased [Recovering/Resolving]
